FAERS Safety Report 8511371 (Version 2)
Quarter: 2015Q1

REPORT INFORMATION
  Report Type: Spontaneous
  Country: US (occurrence: US)
  Receive Date: 20120413
  Receipt Date: 20150303
  Transmission Date: 20150721
  Serious: No
  Sender: FDA-Public Use
  Company Number: US-ASTRAZENECA-2011SE31822

PATIENT
  Age: 449 Month
  Sex: Male
  Weight: 79.4 kg

DRUGS (11)
  1. LISINOPRIL. [Suspect]
     Active Substance: LISINOPRIL
     Indication: BLOOD PRESSURE
     Route: 048
  2. CLONAZAPAM [Concomitant]
     Indication: ANXIETY
     Route: 048
  3. TRAMADOL [Concomitant]
     Active Substance: TRAMADOL
     Indication: PAIN
     Dosage: EVERY FOUR HOURS
     Route: 048
  4. GENERIC LOPRESSOR [Concomitant]
     Dosage: TWO TIMES A DAY
     Route: 048
  5. GENERIC PERCOCET [Concomitant]
     Indication: BACK PAIN
     Route: 048
     Dates: start: 2008
  6. NEXIUM [Suspect]
     Active Substance: ESOMEPRAZOLE MAGNESIUM
     Indication: GASTROOESOPHAGEAL REFLUX DISEASE
     Route: 048
     Dates: start: 2012, end: 2012
  7. PRILOSEC [Suspect]
     Active Substance: OMEPRAZOLE MAGNESIUM
     Indication: GASTROOESOPHAGEAL REFLUX DISEASE
     Route: 048
     Dates: start: 201304, end: 201404
  8. METOPROLOL [Concomitant]
     Active Substance: METOPROLOL
     Dosage: TWO TIMES A DAY
     Route: 048
  9. GENERIC SOMA [Concomitant]
     Indication: PAIN
     Dosage: THREE TIMES A DAY
     Route: 048
  10. AMLODIPINE [Concomitant]
     Active Substance: AMLODIPINE BESYLATE
     Route: 048
  11. CELEXA [Concomitant]
     Active Substance: CITALOPRAM HYDROBROMIDE
     Indication: DEPRESSION
     Route: 048

REACTIONS (6)
  - Intentional product misuse [Unknown]
  - Accident at work [Unknown]
  - Memory impairment [Unknown]
  - Vomiting [Unknown]
  - Gastrooesophageal reflux disease [Unknown]
  - Abdominal pain upper [Not Recovered/Not Resolved]

NARRATIVE: CASE EVENT DATE: 200809
